FAERS Safety Report 22156876 (Version 1)
Quarter: 2023Q1

REPORT INFORMATION
  Report Type: Spontaneous
  Country: US (occurrence: US)
  Receive Date: 20230330
  Receipt Date: 20230330
  Transmission Date: 20230417
  Serious: Yes (Other)
  Sender: FDA-Public Use
  Company Number: US-BAYER-2023A041490

PATIENT
  Age: 66 Year
  Sex: Male

DRUGS (3)
  1. KOVALTRY [Suspect]
     Active Substance: ANTIHEMOPHILIC FACTOR, HUMAN RECOMBINANT
     Indication: Factor VIII deficiency
     Dosage: 3500 UNITS (+/-10%) 1 HOUR BEFORE PROCEDURE AND DAILY FOR 5 DAYS
     Route: 042
  2. KOVALTRY [Suspect]
     Active Substance: ANTIHEMOPHILIC FACTOR, HUMAN RECOMBINANT
     Indication: Factor VIII deficiency
     Dosage: 3 DF, ONCE TO TREAT EVENT
     Route: 042
  3. ASCORBIC ACID;CALCIUM;VITAMIN B COMPLEX [Concomitant]

REACTIONS (2)
  - Haemorrhage [None]
  - Dental care [None]
